FAERS Safety Report 25180970 (Version 3)
Quarter: 2025Q3

REPORT INFORMATION
  Report Type: Report from Study
  Country: US (occurrence: US)
  Receive Date: 20250409
  Receipt Date: 20250801
  Transmission Date: 20251021
  Serious: Yes (Other)
  Sender: ABBVIE
  Company Number: US-ABBVIE-4760765

PATIENT
  Sex: Male

DRUGS (2)
  1. SKYRIZI [Suspect]
     Active Substance: RISANKIZUMAB-RZAA
     Indication: Psoriasis
     Route: 058
     Dates: start: 20220406
  2. SKYRIZI [Suspect]
     Active Substance: RISANKIZUMAB-RZAA
     Route: 058
     Dates: start: 20220325

REACTIONS (10)
  - Limb operation [Unknown]
  - Tanning [Unknown]
  - Back disorder [Recovered/Resolved]
  - Arthritis [Unknown]
  - Diabetes mellitus [Unknown]
  - Fibromyalgia [Unknown]
  - Cardiac disorder [Unknown]
  - Psoriasis [Unknown]
  - Malaise [Not Recovered/Not Resolved]
  - Headache [Unknown]
